FAERS Safety Report 4393859-8 (Version None)
Quarter: 2004Q3

REPORT INFORMATION
  Report Type: 
  Country: None (occurrence: None)
  Receive Date: 20040701
  Receipt Date: 20040621
  Transmission Date: 20050211
  Serious: Yes (Death, Hospitalization, Other)
  Sender: FDA-Public Use
  Company Number: 04-246-0768

PATIENT
  Sex: Male
  Weight: 72 kg

DRUGS (1)
  1. DAUNORUBICIN HCL [Suspect]
     Indication: MYELODYSPLASTIC SYNDROME
     Dosage: 45 MG/M2 IV DAYS 1,3
     Route: 042
     Dates: start: 20040428

REACTIONS (1)
  - FEBRILE NEUTROPENIA [None]
